FAERS Safety Report 7468219-3 (Version None)
Quarter: 2011Q2

REPORT INFORMATION
  Report Type: 
  Country: None (occurrence: None)
  Receive Date: 20110509
  Receipt Date: 20100514
  Transmission Date: 20111010
  Serious: Yes (Other)
  Sender: FDA-Public Use
  Company Number: US-SANOFI-AVENTIS-2010SA020483

PATIENT
  Age: 39 Year
  Sex: Female
  Weight: 89.35 kg

DRUGS (4)
  1. METFORMIN HCL [Suspect]
     Indication: WEIGHT CONTROL
     Route: 065
     Dates: start: 20090403
  2. PHENTERMINE [Suspect]
     Route: 065
  3. APIDRA [Suspect]
     Dosage: 15.2 BASELINE AND  BOLUSES WITH MEALS AND SNACKS VIA PUMP
     Route: 058
  4. ESOMEPRAZOLE [Concomitant]

REACTIONS (3)
  - HYPOGLYCAEMIC UNCONSCIOUSNESS [None]
  - HYPERGLYCAEMIA [None]
  - GLYCOSYLATED HAEMOGLOBIN INCREASED [None]
